FAERS Safety Report 17781661 (Version 1)
Quarter: 2020Q2

REPORT INFORMATION
  Report Type: Spontaneous
  Country: US (occurrence: US)
  Receive Date: 20200514
  Receipt Date: 20200514
  Transmission Date: 20200714
  Serious: No
  Sender: FDA-Public Use
  Company Number: US-GALDERMA-US2020017945

PATIENT
  Age: 21 Year
  Sex: Female

DRUGS (4)
  1. PROACTIV MD ADAPALENE ACNE TREATMENT [Suspect]
     Active Substance: ADAPALENE
     Indication: RASH ERYTHEMATOUS
     Dosage: 0.1%
     Route: 061
     Dates: start: 2019, end: 201912
  2. PROACTIV MD DEEP CLEANSING FACE WASH [Concomitant]
     Active Substance: COSMETICS
     Indication: RASH ERYTHEMATOUS
     Route: 061
     Dates: start: 2019, end: 201912
  3. PROACTIV MD DAILY OIL CONTROL SPF 30 [Suspect]
     Active Substance: AVOBENZONE\OCTISALATE\OCTOCRYLENE
     Indication: RASH ERYTHEMATOUS
     Route: 061
     Dates: start: 2019, end: 201912
  4. PROACTIV GREEN TEA MOISTURIZER [Concomitant]
     Active Substance: COSMETICS
     Indication: RASH ERYTHEMATOUS
     Route: 061
     Dates: start: 2019, end: 201912

REACTIONS (4)
  - Dry skin [Not Recovered/Not Resolved]
  - Exposure during pregnancy [Recovered/Resolved]
  - Rash erythematous [Not Recovered/Not Resolved]
  - Product use in unapproved indication [Recovered/Resolved]

NARRATIVE: CASE EVENT DATE: 2019
